FAERS Safety Report 6057498-5 (Version None)
Quarter: 2009Q1

REPORT INFORMATION
  Report Type: 
  Country: None (occurrence: None)
  Receive Date: 20090126
  Receipt Date: 20090126
  Transmission Date: 20090719
  Serious: Yes (Other)
  Sender: FDA-Public Use
  Company Number: None

PATIENT
  Age: 5 Year
  Sex: Male
  Weight: 22.6799 kg

DRUGS (1)
  1. SINGULAIR [Suspect]
     Indication: BRONCHIAL HYPERREACTIVITY
     Dosage: 15 MG 1X DAY PO
     Route: 048

REACTIONS (10)
  - AGGRESSION [None]
  - ANGER [None]
  - EYE ROLLING [None]
  - IRRITABILITY [None]
  - NERVOUS SYSTEM DISORDER [None]
  - OBSESSIVE-COMPULSIVE DISORDER [None]
  - POSTURE ABNORMAL [None]
  - SINUS DISORDER [None]
  - TIC [None]
  - TOURETTE'S DISORDER [None]
